FAERS Safety Report 6784891-5 (Version None)
Quarter: 2010Q2

REPORT INFORMATION
  Report Type: 
  Country: None (occurrence: None)
  Receive Date: 20100618
  Receipt Date: 20100608
  Transmission Date: 20101027
  Serious: Yes (Other)
  Sender: FDA-Public Use
  Company Number: 7004195

PATIENT
  Age: 22 Year
  Sex: Female
  Weight: 92 kg

DRUGS (7)
  1. REBIF [Suspect]
     Indication: MULTIPLE SCLEROSIS
     Dosage: 44 MCG, 3 IN 1 WK, SUBCUTANEOUS
     Route: 058
     Dates: start: 20090810
  2. GABAPENTIN [Concomitant]
  3. MICRONOR [Concomitant]
  4. IBUPROFEN [Concomitant]
  5. CYCLOBENZAPRINE [Concomitant]
  6. HYDROXYZINE [Concomitant]
  7. FOLIC ACID SUPPLEMENT (FOLIC ACID) [Concomitant]

REACTIONS (13)
  - ANXIETY [None]
  - ASTHENIA [None]
  - EAR PAIN [None]
  - FATIGUE [None]
  - HEADACHE [None]
  - INFECTION [None]
  - INFLUENZA LIKE ILLNESS [None]
  - INJECTION SITE ERYTHEMA [None]
  - INJECTION SITE HAEMATOMA [None]
  - INJECTION SITE PAIN [None]
  - LYMPHADENOPATHY [None]
  - MONONUCLEOSIS SYNDROME [None]
  - OROPHARYNGEAL PAIN [None]
